FAERS Safety Report 6738369-5 (Version None)
Quarter: 2010Q2

REPORT INFORMATION
  Report Type: 
  Country: None (occurrence: None)
  Receive Date: 20100520
  Receipt Date: 20100507
  Transmission Date: 20101027
  Serious: Yes (Other)
  Sender: FDA-Public Use
  Company Number: 2010AP000966

PATIENT
  Age: 38 Year
  Sex: Male

DRUGS (1)
  1. CITALOPRAM HYDROBROMIDE [Suspect]
     Indication: DEPRESSION
     Dosage: 20 MG;TAB;PO;QD; 40 MG
     Route: 048
     Dates: start: 20090610

REACTIONS (2)
  - FEELINGS OF WORTHLESSNESS [None]
  - SUICIDAL IDEATION [None]
